FAERS Safety Report 5379808-4 (Version None)
Quarter: 2007Q3

REPORT INFORMATION
  Report Type: 
  Country: None (occurrence: None)
  Receive Date: 20070703
  Receipt Date: 20070620
  Transmission Date: 20080115
  Serious: Yes (Other)
  Sender: FDA-Public Use
  Company Number: GXKR2007GB05328

PATIENT
  Age: 28 Year
  Sex: Female

DRUGS (5)
  1. ERYTHROMYCIN [Suspect]
     Indication: ROSACEA
     Dosage: SEE IMAGE
     Route: 048
  2. PREDNISOLONE [Suspect]
     Indication: ROSACEA
     Dosage: SEE IMAGE
     Route: 048
  3. DINOPROSTONE (DINOPROSTONE) [Concomitant]
  4. MIFEPRISTONE (MIFEPRISTONE) [Concomitant]
  5. MISOPROSTOL [Concomitant]

REACTIONS (8)
  - BODY MASS INDEX INCREASED [None]
  - CAESAREAN SECTION [None]
  - COMPLICATIONS OF MATERNAL EXPOSURE TO THERAPEUTIC DRUGS [None]
  - DRUG EXPOSURE DURING PREGNANCY [None]
  - DRUG INEFFECTIVE [None]
  - GESTATIONAL DIABETES [None]
  - INTRA-UTERINE DEATH [None]
  - OLIGOHYDRAMNIOS [None]
